FAERS Safety Report 5593297-6 (Version None)
Quarter: 2008Q1

REPORT INFORMATION
  Report Type: 
  Country: None (occurrence: None)
  Receive Date: 20080116
  Receipt Date: 20080114
  Transmission Date: 20080703
  Serious: Yes (Death)
  Sender: FDA-Public Use
  Company Number: A0703018A

PATIENT
  Sex: Male

DRUGS (3)
  1. EPIVIR [Suspect]
     Indication: HEPATITIS B
     Dosage: 150MG PER DAY
     Route: 048
     Dates: start: 20041201
  2. PROGRAF [Concomitant]
  3. CELLCEPT [Concomitant]

REACTIONS (1)
  - DEATH [None]
